FAERS Safety Report 18605449 (Version 1)
Quarter: 2020Q4

REPORT INFORMATION
  Report Type: Spontaneous
  Country: HU (occurrence: HU)
  Receive Date: 20201211
  Receipt Date: 20201211
  Transmission Date: 20210114
  Serious: Yes (Death)
  Sender: FDA-Public Use
  Company Number: HU-PFIZER INC-2020486567

PATIENT
  Age: 73 Year
  Sex: Male

DRUGS (5)
  1. CYTARABINE. [Suspect]
     Active Substance: CYTARABINE
     Indication: ACUTE MYELOID LEUKAEMIA
     Dosage: UNK
  2. DAUNORUBICIN [Concomitant]
     Active Substance: DAUNORUBICIN
     Indication: ACUTE MYELOID LEUKAEMIA
     Dosage: UNK
  3. ARA-C [Concomitant]
     Active Substance: CYTARABINE
     Indication: ACUTE MYELOID LEUKAEMIA
     Dosage: UNK
  4. RYDAPT [Suspect]
     Active Substance: MIDOSTAURIN
     Indication: ACUTE MYELOID LEUKAEMIA
     Dosage: UNK
  5. FLAG-IDA [Concomitant]
     Active Substance: CYTARABINE\FLUDARABINE\GRANULOCYTE COLONY-STIMULATING FACTOR NOS\IDARUBICIN
     Indication: ACUTE MYELOID LEUKAEMIA
     Dosage: UNK

REACTIONS (4)
  - Death [Fatal]
  - Off label use [Unknown]
  - Neoplasm recurrence [Unknown]
  - Neoplasm progression [Unknown]
